FAERS Safety Report 26157459 (Version 1)
Quarter: 2025Q4

REPORT INFORMATION
  Report Type: Report from Study
  Country: None (occurrence: EU)
  Receive Date: 20251215
  Receipt Date: 20251215
  Transmission Date: 20260118
  Serious: Yes (Hospitalization)
  Sender: TG THERAPEUTICS
  Company Number: EU-TG THERAPEUTICS INC.-TGT005925

PATIENT
  Age: 51 Year
  Weight: 58 kg

DRUGS (1)
  1. UBLITUXIMAB [Suspect]
     Active Substance: UBLITUXIMAB
     Indication: Multiple sclerosis
     Dosage: 450 MILLIGRAM

REACTIONS (4)
  - Epstein-Barr virus infection reactivation [Recovering/Resolving]
  - General physical health deterioration [Recovering/Resolving]
  - Pneumonia [Recovering/Resolving]
  - Hypogammaglobulinaemia [Recovering/Resolving]
